FAERS Safety Report 8047800 (Version 7)
Quarter: 2013Q1

REPORT INFORMATION
  Report Type: Spontaneous
  Country: US (occurrence: US)
  Receive Date: 20110721
  Receipt Date: 20130301
  Transmission Date: 20140127
  Serious: Yes (Hospitalization, Congenital Anomaly, Other)
  Sender: FDA-Public Use
  Company Number: US-PFIZER INC-2011159888

PATIENT
  Sex: Female
  Weight: 3.4 kg

DRUGS (31)
  1. ZOLOFT [Suspect]
     Indication: ANXIETY
     Dosage: 25 MG, 1X/DAY (50MG HALF TABLET ONCE A DAY FOR ONE WEEK)
     Route: 064
     Dates: start: 19990712, end: 199907
  2. ZOLOFT [Suspect]
     Indication: DEPRESSION
     Dosage: 50 MG, 1X/DAY
     Route: 064
     Dates: start: 199907
  3. ZOLOFT [Suspect]
     Dosage: 25 MG, 1X/DAY
     Route: 064
     Dates: start: 20030303
  4. ZOLOFT [Suspect]
     Dosage: 50 MG, 1X/DAY
     Route: 064
     Dates: start: 20030911
  5. ALBUTEROL [Concomitant]
     Dosage: 90 UG, 1 PUFF 4X/DAY
     Route: 064
     Dates: start: 20031201
  6. PROCTOSOL-HC [Concomitant]
     Dosage: 2.5 %, 2X/DAY
     Route: 064
     Dates: start: 20031210
  7. AMOXICILLIN W/CLAVULANATE POTASSIUM [Concomitant]
     Dosage: 500/125,
     Route: 064
     Dates: start: 20031201
  8. MACROBID [Concomitant]
     Indication: INFECTION
     Dosage: 100 MG, 2X/DAY
     Route: 064
     Dates: start: 20031017
  9. TERAZOL 7 [Concomitant]
     Dosage: 0.4 %, BEDTIME
     Route: 064
     Dates: start: 20031015
  10. NITROFURANTOIN [Concomitant]
     Indication: URINARY TRACT INFECTION
     Dosage: 100 UNK, 2X/DAY
     Route: 064
     Dates: start: 20030614
  11. METOCLOPRAMIDE [Concomitant]
     Dosage: 10 MG, 3X/DAY
     Route: 064
     Dates: start: 20030613
  12. ACETAMINOPHEN W/CODEINE [Concomitant]
     Indication: PAIN
     Dosage: 300/30 MG, EVERY 4 -6 HOURS
     Route: 064
     Dates: start: 20030602
  13. PRENATAL VITAMINS [Concomitant]
     Dosage: UNK
     Route: 064
  14. TYLENOL [Concomitant]
     Dosage: UNK
     Route: 064
  15. LEVAQUIN [Concomitant]
     Dosage: UNK
     Route: 064
  16. SYMAX SL [Concomitant]
     Dosage: UNK
     Route: 064
  17. LORAZEPAM [Concomitant]
     Dosage: UNK
     Route: 064
  18. SULFA/TRIMETHOPRIM [Concomitant]
     Dosage: UNK
     Route: 064
  19. PAXIL [Concomitant]
     Dosage: UNK
     Route: 064
  20. LEVLEN [Concomitant]
     Dosage: UNK
     Route: 064
  21. FLAGYL [Concomitant]
     Dosage: UNK
     Route: 064
  22. CLINDAMYCIN [Concomitant]
     Dosage: UNK
     Route: 064
  23. NALEX-A [Concomitant]
     Dosage: UNK
     Route: 064
  24. NAPROXEN [Concomitant]
     Dosage: UNK
     Route: 064
  25. CEFADROXIL [Concomitant]
     Dosage: UNK
     Route: 064
  26. URISPAS [Concomitant]
     Dosage: UNK
     Route: 064
  27. CIPRO [Concomitant]
     Dosage: UNK
     Route: 064
  28. BENADRYL [Concomitant]
     Dosage: UNK
     Route: 064
  29. ANEMAGEN [Concomitant]
     Dosage: UNK
     Route: 064
  30. TERAZOL [Concomitant]
     Dosage: UNK
     Route: 064
  31. ED-TLC [Concomitant]
     Dosage: UNK
     Route: 064

REACTIONS (5)
  - Maternal exposure timing unspecified [Unknown]
  - Patent ductus arteriosus [Recovered/Resolved]
  - Left ventricular hypertrophy [Unknown]
  - Jaundice neonatal [Unknown]
  - Congenital anomaly [Unknown]
